FAERS Safety Report 5776465-X (Version None)
Quarter: 2008Q2

REPORT INFORMATION
  Report Type: 
  Country: None (occurrence: None)
  Receive Date: 20080618
  Receipt Date: 20080606
  Transmission Date: 20081010
  Serious: Yes (Hospitalization, Other)
  Sender: FDA-Public Use
  Company Number: CA-JNJFOC-20080601922

PATIENT
  Sex: Female

DRUGS (4)
  1. REMICADE [Suspect]
     Dosage: 4TH DOSE
     Route: 042
  2. REMICADE [Suspect]
     Dosage: 3RD DOSE
     Route: 042
  3. REMICADE [Suspect]
     Route: 042
  4. REMICADE [Suspect]
     Indication: DRUG USE FOR UNKNOWN INDICATION
     Dosage: IN 250 CC NACL
     Route: 042

REACTIONS (4)
  - CATARACT [None]
  - EYE HAEMORRHAGE [None]
  - PNEUMONIA [None]
  - THROMBOSIS [None]
